FAERS Safety Report 19625477 (Version 6)
Quarter: 2023Q1

REPORT INFORMATION
  Report Type: Report from Study
  Country: CA (occurrence: CA)
  Receive Date: 20210728
  Receipt Date: 20230214
  Transmission Date: 20230417
  Serious: Yes (Hospitalization, Other)
  Sender: FDA-Public Use
  Company Number: CA-BRISTOL-MYERS SQUIBB COMPANY-BMS-2021-071435

PATIENT
  Age: 74 Year
  Sex: Male
  Weight: 72 kg

DRUGS (26)
  1. NIVOLUMAB [Suspect]
     Active Substance: NIVOLUMAB
     Indication: Colorectal cancer metastatic
     Dosage: MOST RECENT DOSE RECEIVED ON 27-MAY-2021
     Route: 042
     Dates: start: 20210427, end: 20210527
  2. CIPROFLOXACIN [Suspect]
     Active Substance: CIPROFLOXACIN
     Indication: Prophylaxis
     Route: 048
     Dates: start: 20210729
  3. MEROPENEM [Suspect]
     Active Substance: MEROPENEM
     Indication: Pneumonitis
     Dates: start: 20210725, end: 20210810
  4. SEPTRA DS [Suspect]
     Active Substance: SULFAMETHOXAZOLE\TRIMETHOPRIM
     Indication: Prophylaxis
     Dosage: 80+400 MILLIGRAMS
     Route: 048
     Dates: start: 20210615, end: 20210811
  5. SEPTRA DS [Suspect]
     Active Substance: SULFAMETHOXAZOLE\TRIMETHOPRIM
     Indication: Pneumonitis
     Dosage: 80+400 MILLIGRAMS
     Route: 048
     Dates: start: 20210722, end: 20210723
  6. MOXIFLOXACIN [Suspect]
     Active Substance: MOXIFLOXACIN
     Indication: Pneumonitis
     Route: 048
     Dates: start: 20210726, end: 20210728
  7. PIPERACILLIN AND TAZOBACTAM [Suspect]
     Active Substance: PIPERACILLIN SODIUM\TAZOBACTAM SODIUM
     Indication: Pneumonitis
     Route: 042
     Dates: start: 20210720, end: 20210725
  8. DAPSONE [Suspect]
     Active Substance: DAPSONE
     Indication: Prophylaxis
     Route: 048
     Dates: start: 20210812
  9. APIXABAN [Concomitant]
     Active Substance: APIXABAN
     Indication: Prophylaxis
     Dosage: BID
     Route: 048
     Dates: start: 202102
  10. PANTOPRAZOLE [Concomitant]
     Active Substance: PANTOPRAZOLE
     Indication: Prophylaxis
     Dosage: QD
     Route: 048
     Dates: start: 20210615
  11. PREDNISONE [Concomitant]
     Active Substance: PREDNISONE
     Indication: Liver function test increased
     Dosage: QD
     Route: 048
     Dates: start: 20210618, end: 20210712
  12. PREDNISONE [Concomitant]
     Active Substance: PREDNISONE
     Indication: Prophylaxis
     Route: 048
     Dates: start: 20210703, end: 20210709
  13. PREDNISONE [Concomitant]
     Active Substance: PREDNISONE
     Indication: Alanine aminotransferase increased
     Route: 048
     Dates: start: 20210710, end: 20210716
  14. PREDNISONE [Concomitant]
     Active Substance: PREDNISONE
     Indication: Aspartate aminotransferase increased
     Dosage: QD
     Route: 048
     Dates: start: 20210712, end: 20210719
  15. JANUMET [Concomitant]
     Active Substance: METFORMIN HYDROCHLORIDE\SITAGLIPTIN PHOSPHATE
     Indication: Glucose tolerance impaired
     Dosage: JANUMET 50/500 MG?2.5 UNITS NOS?1.5 TABS AAM AND 1 TAB QPM
     Route: 048
     Dates: start: 2017, end: 20210707
  16. JANUMET [Concomitant]
     Active Substance: METFORMIN HYDROCHLORIDE\SITAGLIPTIN PHOSPHATE
     Dosage: 1 DOSAGE FORM = 2.5 UNITS NOS
     Route: 048
     Dates: start: 20210707, end: 20210720
  17. ATORVASTATIN [Concomitant]
     Active Substance: ATORVASTATIN
     Indication: Hypercholesterolaemia
     Dosage: QD
     Route: 048
     Dates: start: 2013
  18. GLICLAZIDE [Concomitant]
     Active Substance: GLICLAZIDE
     Indication: Glucose tolerance impaired
     Route: 048
     Dates: start: 2020, end: 20210720
  19. SITAGLIPTIN [Concomitant]
     Active Substance: SITAGLIPTIN
     Indication: Product used for unknown indication
     Route: 048
     Dates: start: 2017, end: 20210707
  20. METFORMIN [Concomitant]
     Active Substance: METFORMIN HYDROCHLORIDE
     Indication: Prophylaxis
     Route: 048
     Dates: start: 2017, end: 20210707
  21. JARDIANCE [Concomitant]
     Active Substance: EMPAGLIFLOZIN
     Indication: Glucose tolerance impaired
     Dosage: QD
     Route: 048
     Dates: start: 2017, end: 20210720
  22. PERINDOPRIL [Concomitant]
     Active Substance: PERINDOPRIL
     Indication: Hypertension
     Dosage: QD
     Route: 048
     Dates: start: 2020, end: 20210720
  23. VITAMIN D [Concomitant]
     Active Substance: VITAMIN D NOS
     Indication: Prophylaxis
     Dosage: 1 DOSAGE FORM = 2000 UNIT NOS
     Route: 048
     Dates: start: 2000
  24. SOLU-MEDROL [Concomitant]
     Active Substance: METHYLPREDNISOLONE SODIUM SUCCINATE
     Indication: Pneumonitis
     Route: 042
     Dates: start: 20210720
  25. SULFAMETHOXAZOLE [Concomitant]
     Active Substance: SULFAMETHOXAZOLE
     Indication: Prophylaxis
     Route: 048
     Dates: start: 20210615, end: 20210811
  26. TRIMETHOPRIM [Concomitant]
     Active Substance: TRIMETHOPRIM
     Indication: Prophylaxis
     Route: 048
     Dates: start: 20210615, end: 20210811

REACTIONS (3)
  - Pneumonitis [Recovered/Resolved]
  - Drug-induced liver injury [Recovered/Resolved]
  - Pneumonia [Recovered/Resolved]

NARRATIVE: CASE EVENT DATE: 20210720
